FAERS Safety Report 11006033 (Version 1)
Quarter: 2015Q2

REPORT INFORMATION
  Report Type: Spontaneous
  Country: US (occurrence: US)
  Receive Date: 20150409
  Receipt Date: 20150409
  Transmission Date: 20150821
  Serious: Yes (Other)
  Sender: FDA-Public Use
  Company Number: US-CELGENEUS-USA-2015010582

PATIENT
  Sex: Female

DRUGS (2)
  1. THALOMID [Suspect]
     Active Substance: THALIDOMIDE
     Route: 048
     Dates: start: 201403
  2. THALOMID [Suspect]
     Active Substance: THALIDOMIDE
     Indication: APHTHOUS STOMATITIS
     Route: 048
     Dates: start: 201402

REACTIONS (2)
  - Sinusitis [Unknown]
  - Palpitations [Unknown]

NARRATIVE: CASE EVENT DATE: 2014
